FAERS Safety Report 10067471 (Version 3)
Quarter: 2014Q2

REPORT INFORMATION
  Report Type: Spontaneous
  Country: JP (occurrence: None)
  Receive Date: 20140407
  Receipt Date: 20140428
  Transmission Date: 20141212
  Serious: Yes (Other)
  Sender: FDA-Public Use
  Company Number: JP-015136

PATIENT
  Age: 87 Year
  Sex: Male
  Weight: 65 kg

DRUGS (5)
  1. DEGARELIX (GONAX) 240 MG [Suspect]
     Indication: PROSTATE CANCER METASTATIC
     Dosage: 240 MG 1X SUBCUTANEOUS
     Route: 058
     Dates: start: 20140120, end: 20140120
  2. CASODEX [Suspect]
     Indication: ANTIANDROGEN THERAPY
     Dosage: 80 MG, UID/AQ ORAL
     Route: 048
     Dates: start: 20131226
  3. ZOMETA [Suspect]
     Indication: METASTASES TO BONE
     Dosage: UID QD IVDRP.
     Route: 041
     Dates: start: 20140120, end: 20140120
  4. CALONAL [Concomitant]
  5. BAKTAR [Concomitant]

REACTIONS (2)
  - Interstitial lung disease [None]
  - Decreased appetite [None]
